FAERS Safety Report 16284814 (Version 1)
Quarter: 2019Q2

REPORT INFORMATION
  Report Type: Spontaneous
  Country: US (occurrence: US)
  Receive Date: 20190402
  Receipt Date: 20190402
  Transmission Date: 20190711
  Serious: Yes (Hospitalization)
  Sender: FDA-Public Use
  Company Number: None

PATIENT
  Age: 56 Year
  Sex: Female
  Weight: 63 kg

DRUGS (1)
  1. LIDOCAINE. [Suspect]
     Active Substance: LIDOCAINE
     Indication: PAIN
     Dosage: ?          OTHER DOSE:MODERATE AMOUNT;?
     Route: 061
     Dates: start: 20180730, end: 20180805

REACTIONS (1)
  - Application site rash [None]

NARRATIVE: CASE EVENT DATE: 20180805
